FAERS Safety Report 8291724-7 (Version None)
Quarter: 2012Q2

REPORT INFORMATION
  Report Type: 
  Country: None (occurrence: None)
  Receive Date: 20120417
  Receipt Date: 20111116
  Transmission Date: 20120825
  Serious: No
  Sender: FDA-Public Use
  Company Number: US-ASTRAZENECA-2011SE56053

PATIENT
  Age: 89 Year
  Sex: Female

DRUGS (8)
  1. DETROL LA [Concomitant]
  2. VITAMIN D [Concomitant]
  3. CRESTOR [Suspect]
     Route: 048
     Dates: start: 20110916
  4. TYLENOL (CAPLET) [Concomitant]
  5. M.V.I. [Concomitant]
  6. ZOLOFT [Concomitant]
  7. ASCORBIC ACID [Concomitant]
  8. NEXIUM [Suspect]
     Route: 048

REACTIONS (8)
  - DYSURIA [None]
  - ARTHRALGIA [None]
  - CAROTID ARTERY DISEASE [None]
  - ARTERIOSCLEROSIS [None]
  - MICTURITION URGENCY [None]
  - WEIGHT DECREASED [None]
  - ANAEMIA [None]
  - NAUSEA [None]
